FAERS Safety Report 6427982-0 (Version None)
Quarter: 2009Q4

REPORT INFORMATION
  Report Type: 
  Country: None (occurrence: None)
  Receive Date: 20091105
  Receipt Date: 20091102
  Transmission Date: 20100525
  Serious: Yes (Death, Other)
  Sender: FDA-Public Use
  Company Number: PHEH2009US10383

PATIENT
  Sex: Male
  Weight: 48.6 kg

DRUGS (4)
  1. EXJADE [Suspect]
     Indication: MYELODYSPLASTIC SYNDROME
     Dosage: 1500 MG, QD
     Route: 048
  2. LYRICA [Concomitant]
     Dosage: DAILY
     Route: 048
  3. LEXAPRO [Concomitant]
     Dosage: 10 MG, QD
     Route: 048
  4. MEGACE [Concomitant]
     Dosage: DAILY
     Route: 048

REACTIONS (5)
  - ANAEMIA [None]
  - DEATH [None]
  - ELECTROCARDIOGRAM ABNORMAL [None]
  - HAEMATOCRIT DECREASED [None]
  - UNRESPONSIVE TO STIMULI [None]
